FAERS Safety Report 8059835-9 (Version None)
Quarter: 2012Q1

REPORT INFORMATION
  Report Type: 
  Country: None (occurrence: None)
  Receive Date: 20120119
  Receipt Date: 20120119
  Transmission Date: 20120608
  Serious: Yes (Hospitalization)
  Sender: FDA-Public Use
  Company Number: None

PATIENT
  Age: 85 Year
  Sex: Female
  Weight: 50 kg

DRUGS (10)
  1. FORTEO [Concomitant]
  2. TOVIAZ [Concomitant]
  3. LIPITOR [Concomitant]
  4. LEVOTHYROXINE SODIUM [Concomitant]
  5. CA + VIT D [Concomitant]
  6. MULTI-VITAMINS [Concomitant]
  7. KEFLEX [Suspect]
     Indication: URINARY TRACT INFECTION
     Dosage: PO  RECENT
     Route: 048
  8. ASPIRIN [Concomitant]
  9. HYDROCHLOROTHIAZIDE [Concomitant]
  10. ZETIA [Concomitant]

REACTIONS (2)
  - RASH [None]
  - HEPATIC ENZYME INCREASED [None]
